FAERS Safety Report 4673765-1 (Version None)
Quarter: 2005Q2

REPORT INFORMATION
  Report Type: 
  Country: None (occurrence: None)
  Receive Date: 20050523
  Receipt Date: 20040427
  Transmission Date: 20051028
  Serious: Yes (Other)
  Sender: FDA-Public Use
  Company Number: 10053667-C607852-1

PATIENT

DRUGS (1)
  1. LACTATED RINGER'S [Suspect]
     Dosage: DIALYSIS
     Dates: start: 20040421, end: 20040427

REACTIONS (2)
  - BLOOD POTASSIUM INCREASED [None]
  - MEDICATION ERROR [None]
